FAERS Safety Report 10080695 (Version 1)
Quarter: 2014Q2

REPORT INFORMATION
  Report Type: Report from Study
  Country: BR (occurrence: BR)
  Receive Date: 20140416
  Receipt Date: 20140416
  Transmission Date: 20141212
  Serious: Yes (Death)
  Sender: FDA-Public Use
  Company Number: BR-ROCHE-1383497

PATIENT
  Sex: Female

DRUGS (5)
  1. TENECTEPLASE [Suspect]
     Indication: ACUTE MYOCARDIAL INFARCTION
     Dosage: 30-50 MG BOLUS ACCORDING TO BODY WEIGHT (NR,BOLUS)
     Route: 065
  2. ASPIRIN [Suspect]
     Indication: ACUTE MYOCARDIAL INFARCTION
     Dosage: 100 - 200 MG IN THE EMERGENCY DEPARTMENT.
     Route: 048
  3. ASPIRIN [Suspect]
     Route: 048
  4. CLOPIDOGREL [Suspect]
     Indication: ACUTE MYOCARDIAL INFARCTION
     Dosage: 300 MG PREFERABLY OR 600 MG LOADING DOSE (NR)
     Route: 065
  5. CLOPIDOGREL [Suspect]
     Route: 048

REACTIONS (1)
  - Death [Fatal]
